FAERS Safety Report 16236182 (Version 3)
Quarter: 2019Q2

REPORT INFORMATION
  Report Type: Report from Study
  Country: US (occurrence: US)
  Receive Date: 20190425
  Receipt Date: 20190619
  Transmission Date: 20190711
  Serious: Yes (Other)
  Sender: FDA-Public Use
  Company Number: PHEH2019US017136

PATIENT
  Age: 65 Year
  Sex: Female

DRUGS (2)
  1. GILENYA [Suspect]
     Active Substance: FINGOLIMOD HYDROCHLORIDE
     Dosage: UNK
     Route: 048
  2. GILENYA [Suspect]
     Active Substance: FINGOLIMOD HYDROCHLORIDE
     Indication: MULTIPLE SCLEROSIS
     Dosage: 0.5 MG, QD
     Route: 048
     Dates: start: 20190408, end: 20190506

REACTIONS (10)
  - JC polyomavirus test positive [Unknown]
  - Oropharyngeal pain [Unknown]
  - Diarrhoea [Unknown]
  - Fatigue [Not Recovered/Not Resolved]
  - Herpes virus infection [Unknown]
  - Lymphadenopathy [Unknown]
  - Lip pain [Unknown]
  - Photosensitivity reaction [Recovering/Resolving]
  - Abdominal pain upper [Unknown]
  - Sinus disorder [Unknown]

NARRATIVE: CASE EVENT DATE: 20190408
